FAERS Safety Report 16542190 (Version 1)
Quarter: 2019Q3

REPORT INFORMATION
  Report Type: Spontaneous
  Country: US (occurrence: US)
  Receive Date: 20190708
  Receipt Date: 20190708
  Transmission Date: 20191004
  Serious: No
  Sender: FDA-Public Use
  Company Number: US-ROCHE-2281489

PATIENT
  Sex: Male

DRUGS (3)
  1. RITUXAN HYCELA [Suspect]
     Active Substance: HYALURONIDASE (HUMAN RECOMBINANT)\RITUXIMAB
     Indication: MANTLE CELL LYMPHOMA
     Route: 058
  2. NORMAL SALINE [Concomitant]
     Active Substance: SODIUM CHLORIDE
  3. SOLU-CORTEF [Concomitant]
     Active Substance: HYDROCORTISONE SODIUM SUCCINATE
     Route: 065

REACTIONS (3)
  - Hyperhidrosis [Recovered/Resolved]
  - Injection site reaction [Unknown]
  - Swelling [Recovered/Resolved]

NARRATIVE: CASE EVENT DATE: 20190304
